FAERS Safety Report 24130322 (Version 1)
Quarter: 2024Q3

REPORT INFORMATION
  Report Type: Spontaneous
  Country: GB (occurrence: GB)
  Receive Date: 20240724
  Receipt Date: 20240724
  Transmission Date: 20241017
  Serious: Yes (Other)
  Sender: TEVA
  Company Number: None

PATIENT
  Age: 83 Year

DRUGS (15)
  1. METFORMIN [Suspect]
     Active Substance: METFORMIN HYDROCHLORIDE
     Dosage: ONE TO BE TAKEN WITH BREAKFAST AND EVENING MEAL (HELD ?LACTIC ACIDOSIS)
     Route: 065
  2. CYANOCOBALAMIN [Concomitant]
     Active Substance: CYANOCOBALAMIN
  3. CLOPIDOGREL [Concomitant]
     Active Substance: CLOPIDOGREL BISULFATE
  4. Decapeptyl [Concomitant]
     Dosage: DECAPEPTYL SR, LAST ADMISSION STATES DUE IN FEB NEED TO CONFIRM WHAT DATE / IF HAS HAD FROM GP IN...
  5. ATORVASTATIN [Concomitant]
     Active Substance: ATORVASTATIN
     Dosage: NIGHT
  6. ACETAMINOPHEN [Concomitant]
     Active Substance: ACETAMINOPHEN
     Dosage: EVERY 4 - 6 HOURS UP TO FOUR TIMES A DAY
  7. FERROUS FUMARATE [Concomitant]
     Active Substance: FERROUS FUMARATE
     Dosage: 210 MG TABLETS ONE TO BE TAKEN THREE TIMES A DAY AT MEALTIMES
  8. PREGABALIN [Concomitant]
     Active Substance: PREGABALIN
  9. THIAMINE [Concomitant]
     Active Substance: THIAMINE
  10. LANSOPRAZOLE [Concomitant]
     Active Substance: LANSOPRAZOLE
     Dosage: MORNING
  11. SIMVASTATIN [Concomitant]
     Active Substance: SIMVASTATIN
     Dosage: 40 MG TABLETS ONE TO BE TAKEN AT NIGHT - CHANGED TO ATORVASTATIN 40MG ON BY CARDIOLOGY
  12. TAMOXIFEN [Concomitant]
     Active Substance: TAMOXIFEN
  13. FLUCLOXACILLIN [Concomitant]
     Active Substance: FLUCLOXACILLIN
     Dates: start: 20240115
  14. FLUDROCORTISONE [Concomitant]
     Active Substance: FLUDROCORTISONE
     Dosage: MORNING
  15. DICLOFENAC DIETHYLAMINE [Concomitant]
     Active Substance: DICLOFENAC DIETHYLAMINE
     Dosage: 1.16% GEL APPLY THREE OR FOUR TIMES A DAY - PATIENT^S DAUGHTER STATES PATIENT USES PRN ON ARM.
     Route: 061

REACTIONS (1)
  - Lactic acidosis [Unknown]
